FAERS Safety Report 13551691 (Version 2)
Quarter: 2017Q2

REPORT INFORMATION
  Report Type: Spontaneous
  Country: US (occurrence: US)
  Receive Date: 20170516
  Receipt Date: 20170615
  Transmission Date: 20170830
  Serious: No
  Sender: FDA-Public Use
  Company Number: US-ACTELION-A-NJ2017-153831

PATIENT
  Age: 67 Year
  Sex: Female

DRUGS (5)
  1. BETAMETHASONE DIPROPIONATE. [Concomitant]
     Active Substance: BETAMETHASONE DIPROPIONATE
  2. ALOE [Concomitant]
     Active Substance: ALOE
  3. KETOCONAZOLE. [Concomitant]
     Active Substance: KETOCONAZOLE
  4. HYDROCORTISONE. [Concomitant]
     Active Substance: HYDROCORTISONE
  5. VALCHLOR [Suspect]
     Active Substance: MECHLORETHAMINE
     Indication: MYCOSIS FUNGOIDES
     Dosage: UNK
     Route: 061
     Dates: start: 20170413

REACTIONS (6)
  - Mycosis fungoides [Not Recovered/Not Resolved]
  - Application site erythema [Unknown]
  - Dermatitis contact [Not Recovered/Not Resolved]
  - Fungal skin infection [Unknown]
  - Application site burn [Unknown]
  - Condition aggravated [Not Recovered/Not Resolved]
